FAERS Safety Report 13375272 (Version 2)
Quarter: 2017Q1

REPORT INFORMATION
  Report Type: Spontaneous
  Country: US (occurrence: US)
  Receive Date: 20170327
  Receipt Date: 20170329
  Transmission Date: 20170429
  Serious: No
  Sender: FDA-Public Use
  Company Number: US-CLOVIS ONCOLOGY-CLO-2017-000169

PATIENT
  Age: 57 Year
  Sex: Female

DRUGS (2)
  1. RUBRACA [Suspect]
     Active Substance: RUCAPARIB CAMSYLATE
     Indication: OVARIAN CANCER
     Dosage: 500 MG, BID (300 MG AND 200 MG)
     Route: 048
     Dates: start: 201702
  2. RUBRACA [Suspect]
     Active Substance: RUCAPARIB CAMSYLATE
     Dosage: 300 MG, BID
     Route: 048
     Dates: start: 201702

REACTIONS (5)
  - Hepatic enzyme increased [Unknown]
  - Chills [Unknown]
  - Chromaturia [Unknown]
  - Prescribed underdose [Unknown]
  - Dysgeusia [Unknown]

NARRATIVE: CASE EVENT DATE: 201702
